FAERS Safety Report 23068852 (Version 1)
Quarter: 2023Q4

REPORT INFORMATION
  Report Type: Spontaneous
  Country: CN (occurrence: CN)
  Receive Date: 20231016
  Receipt Date: 20231016
  Transmission Date: 20240109
  Serious: Yes (Hospitalization, Other)
  Sender: FDA-Public Use
  Company Number: CN-SA-SAC20231013000779

PATIENT
  Age: 73 Year
  Sex: Male

DRUGS (3)
  1. ELOXATIN [Suspect]
     Active Substance: OXALIPLATIN
     Indication: Haematochezia
     Dosage: 150 MG, TOTAL
     Route: 041
     Dates: start: 20230824, end: 20230824
  2. FLUOROURACIL [Suspect]
     Active Substance: FLUOROURACIL
     Indication: Haematochezia
     Dosage: 3.75 G, QD
     Dates: start: 20230824, end: 20230825
  3. LEVOLEUCOVORIN CALCIUM [Concomitant]
     Active Substance: LEVOLEUCOVORIN CALCIUM
     Indication: Haematochezia
     Dosage: 300 MG
     Route: 041
     Dates: start: 20230824

REACTIONS (3)
  - Haematochezia [Recovering/Resolving]
  - Melaena [Recovering/Resolving]
  - Diarrhoea [Recovering/Resolving]

NARRATIVE: CASE EVENT DATE: 20230825
